FAERS Safety Report 8602371-9 (Version None)
Quarter: 2012Q3

REPORT INFORMATION
  Report Type: 
  Country: None (occurrence: None)
  Receive Date: 20120817
  Receipt Date: 20120810
  Transmission Date: 20120928
  Serious: Yes (Disabling, Other)
  Sender: FDA-Public Use
  Company Number: GB-B.I. PHARMACEUTICALS,INC./RIDGEFIELD-2012-UK-01062UK

PATIENT
  Age: 84 Year
  Sex: Female

DRUGS (8)
  1. PRADAXA [Suspect]
     Dates: start: 20120704
  2. LOSARTAN POTASSIUM [Concomitant]
     Dates: start: 20120501, end: 20120508
  3. SIMVASTATIN [Concomitant]
     Dates: start: 20120417, end: 20120710
  4. AMLODIPINE [Concomitant]
     Dates: start: 20120501, end: 20120529
  5. NITROFURANTOIN [Concomitant]
     Dates: start: 20120720, end: 20120727
  6. CLOPIDOGREL [Concomitant]
     Dates: start: 20120417, end: 20120710
  7. ATENOLOL [Concomitant]
     Dates: start: 20120417, end: 20120710
  8. LEVOTHYROXINE SODIUM [Concomitant]
     Dates: start: 20120417, end: 20120710

REACTIONS (3)
  - LACUNAR INFARCTION [None]
  - DYSPEPSIA [None]
  - ABDOMINAL DISCOMFORT [None]
